FAERS Safety Report 5741117-9 (Version None)
Quarter: 2008Q2

REPORT INFORMATION
  Report Type: 
  Country: None (occurrence: None)
  Receive Date: 20080516
  Receipt Date: 20080506
  Transmission Date: 20081010
  Serious: Yes (Other)
  Sender: FDA-Public Use
  Company Number: AU-PFIZER INC-2008040134

PATIENT
  Age: 66 Year
  Sex: Male

DRUGS (5)
  1. SUTENT [Suspect]
     Indication: GASTROINTESTINAL STROMAL TUMOUR
     Route: 048
  2. NEXIUM [Concomitant]
  3. LIPEX [Concomitant]
  4. AMLODIPINE [Concomitant]
  5. ENOXAPARIN SODIUM [Concomitant]

REACTIONS (2)
  - CONVULSION [None]
  - THROMBOSIS [None]
